FAERS Safety Report 12062887 (Version 2)
Quarter: 2016Q1

REPORT INFORMATION
  Report Type: Report from Study
  Country: BE (occurrence: BE)
  Receive Date: 20160210
  Receipt Date: 20160212
  Transmission Date: 20160526
  Serious: Yes (Death, Hospitalization)
  Sender: FDA-Public Use
  Company Number: BE-ABBVIE-15P-013-1410559-00

PATIENT
  Age: 79 Year
  Sex: Male

DRUGS (5)
  1. DUODOPA [Suspect]
     Active Substance: CARBIDOPA\LEVODOPA
     Dosage: AM=7.5ML;CD=4.9ML/HR DURING 16HRS;ED=3ML
     Route: 050
     Dates: start: 20131121, end: 20160205
  2. DUODOPA [Suspect]
     Active Substance: CARBIDOPA\LEVODOPA
     Indication: PARKINSON^S DISEASE
     Dosage: UNKNOWN
     Route: 050
     Dates: start: 20081118, end: 20081121
  3. DUODOPA [Suspect]
     Active Substance: CARBIDOPA\LEVODOPA
     Dosage: AM=10ML;CD=5.3ML/HR DURING 16HRS;ED=3ML
     Route: 050
     Dates: start: 20081121
  4. DUODOPA [Suspect]
     Active Substance: CARBIDOPA\LEVODOPA
     Dosage: AM=7.5ML; CD=5.1ML/HR DURING 16HRS; ED=3ML
     Route: 050
     Dates: end: 20131121
  5. DUODOPA [Suspect]
     Active Substance: CARBIDOPA\LEVODOPA
     Dosage: AM=7.5ML;CD=4.9ML/HR DURING 16HRS;ED=3ML
     Route: 050
     Dates: start: 20160205

REACTIONS (11)
  - Death [Fatal]
  - Bedridden [Not Recovered/Not Resolved]
  - Fall [Unknown]
  - Device dislocation [Recovered/Resolved]
  - Anaemia [Not Recovered/Not Resolved]
  - General physical health deterioration [Not Recovered/Not Resolved]
  - Restlessness [Unknown]
  - Posture abnormal [Unknown]
  - Drug ineffective [Unknown]
  - Device dislocation [Unknown]
  - Hypophagia [Not Recovered/Not Resolved]

NARRATIVE: CASE EVENT DATE: 20160206
